FAERS Safety Report 7701147-4 (Version None)
Quarter: 2011Q3

REPORT INFORMATION
  Report Type: 
  Country: None (occurrence: None)
  Receive Date: 20110822
  Receipt Date: 20110811
  Transmission Date: 20111222
  Serious: Yes (Hospitalization)
  Sender: FDA-Public Use
  Company Number: US-MPIJNJ-2011-03559

PATIENT
  Age: 83 Year
  Sex: Male

DRUGS (1)
  1. VELCADE [Suspect]
     Indication: MULTIPLE MYELOMA
     Dosage: 3 MG, Q3WEEKS
     Route: 042
     Dates: start: 20100628, end: 20100816

REACTIONS (1)
  - PAIN [None]
